FAERS Safety Report 8028007-6 (Version None)
Quarter: 2012Q1

REPORT INFORMATION
  Report Type: 
  Country: None (occurrence: None)
  Receive Date: 20120106
  Receipt Date: 20110520
  Transmission Date: 20120608
  Serious: No
  Sender: FDA-Public Use
  Company Number: US-MYLANLABS-2011S1010463

PATIENT
  Age: 26 Year
  Sex: Male

DRUGS (2)
  1. PHENYTOIN SODIUM CAP [Suspect]
     Indication: EPILEPSY
     Dates: start: 20060101
  2. PHENYTOIN SODIUM CAP [Suspect]
     Dates: start: 20060101

REACTIONS (1)
  - FALSE POSITIVE INVESTIGATION RESULT [None]
